FAERS Safety Report 4974425-X (Version None)
Quarter: 2006Q2

REPORT INFORMATION
  Report Type: 
  Country: None (occurrence: None)
  Receive Date: 20060410
  Receipt Date: 20040105
  Transmission Date: 20061013
  Serious: Yes (Death)
  Sender: FDA-Public Use
  Company Number: 2006-140498-NL

PATIENT
  Age: 56 Year
  Sex: Male

DRUGS (4)
  1. DANAPAROID SODIUM [Suspect]
     Indication: DISSEMINATED INTRAVASCULAR COAGULATION
     Route: 042
     Dates: start: 20030829, end: 20030918
  2. NAFAMOSTAT MESILATE [Concomitant]
  3. ANTITHROMBIN III [Concomitant]
  4. FAMOTIDINE [Concomitant]

REACTIONS (3)
  - CONDITION AGGRAVATED [None]
  - HAEMOGLOBIN DECREASED [None]
  - PRE-EXISTING DISEASE [None]
